FAERS Safety Report 14167797 (Version 1)
Quarter: 2017Q4

REPORT INFORMATION
  Report Type: Spontaneous
  Country: JP (occurrence: JP)
  Receive Date: 20171108
  Receipt Date: 20171108
  Transmission Date: 20180321
  Serious: Yes (Hospitalization, Other)
  Sender: FDA-Public Use
  Company Number: JP-MACLEODS PHARMACEUTICALS US LTD-MAC2017006284

PATIENT

DRUGS (15)
  1. HEPARIN [Suspect]
     Active Substance: HEPARIN SODIUM
     Indication: PRODUCT USED FOR UNKNOWN INDICATION
     Dosage: 400 IU, AT THE BEGINNING OF SURGERY
     Route: 042
  2. HEPARIN [Suspect]
     Active Substance: HEPARIN SODIUM
     Dosage: 500 IU, DURING SURGERY
     Route: 042
  3. PROPOFOL. [Concomitant]
     Active Substance: PROPOFOL
     Indication: GENERAL ANAESTHESIA
     Dosage: 0.0005 MG/KG/MIN (0.5 ?G/KG/MIN) TARGET-CONTROLLED INFUSION
     Route: 042
  4. PROPOFOL. [Concomitant]
     Active Substance: PROPOFOL
     Dosage: 0.0001 MG/KG/MIN, 0.1 ?G/KG/MIN TARGET-CONTROLLED INFUSION
     Route: 042
  5. FENTANYL. [Concomitant]
     Active Substance: FENTANYL
     Indication: PRODUCT USED FOR UNKNOWN INDICATION
     Dosage: 100 ?G, 10 MIN BEFORE SURGERY COMPLETION
     Route: 065
  6. REMIFENTANIL [Concomitant]
     Active Substance: REMIFENTANIL
     Indication: GENERAL ANAESTHESIA
     Dosage: 0.0005 MG/KG/MIN, 0.5 ?G/KG/MIN, TARGET-CONTROLLED INFUSION
     Route: 042
  7. CLOPIDOGREL [Suspect]
     Active Substance: CLOPIDOGREL BISULFATE
     Indication: PRODUCT USED FOR UNKNOWN INDICATION
     Dosage: 300 MG, THE DAY BEFORE SURGERY
     Route: 048
  8. ARGATROBAN. [Suspect]
     Active Substance: ARGATROBAN
     Indication: PRODUCT USED FOR UNKNOWN INDICATION
     Dosage: 0.0008 MG/KG/MIN, 0.8 ?G/KG/MIN, CONTINUOUS INFUSION: STARTED ON COMPLETION OF SURGERY
     Route: 042
  9. OXYGEN. [Concomitant]
     Active Substance: OXYGEN
     Indication: PRODUCT USED FOR UNKNOWN INDICATION
     Dosage: INHALATIONAL OXYGEN CONCENTRATION OF 37%
     Route: 055
  10. PHENYLEPHRINE [Concomitant]
     Active Substance: PHENYLEPHRINE\PHENYLEPHRINE HYDROCHLORIDE
     Indication: PRODUCT USED FOR UNKNOWN INDICATION
     Dosage: CONTINUOUS INFUSION: 0.4-0.5 MG/H
     Route: 042
  11. CLOPIDOGREL [Suspect]
     Active Substance: CLOPIDOGREL BISULFATE
     Dosage: 75 MG, IN THE MORNING OF THE DAY OF SURGERY
     Route: 048
  12. ASPIRIN. [Suspect]
     Active Substance: ASPIRIN
     Dosage: 100 MG, IN THE MORNING OF THE DAY OF SURGERY
     Route: 048
  13. REMIFENTANIL [Concomitant]
     Active Substance: REMIFENTANIL
     Dosage: 0.0001 MG/KG/MIN, 0.1 ?G/KG/MIN TARGET-CONTROLLED INFUSION
     Route: 042
  14. ASPIRIN. [Suspect]
     Active Substance: ASPIRIN
     Indication: PRODUCT USED FOR UNKNOWN INDICATION
     Dosage: 200 MG, THE DAY BEFORE SURGERY
     Route: 048
  15. ROCURONIUM [Concomitant]
     Active Substance: ROCURONIUM BROMIDE
     Indication: GENERAL ANAESTHESIA
     Dosage: 50 MG, UNK
     Route: 042

REACTIONS (7)
  - Shock haemorrhagic [Recovering/Resolving]
  - Mucosal haemorrhage [Recovering/Resolving]
  - Haematemesis [Recovering/Resolving]
  - Nausea [Recovering/Resolving]
  - Chest discomfort [Recovering/Resolving]
  - Oesophageal intramural haematoma [Recovering/Resolving]
  - Laryngeal oedema [Recovering/Resolving]
